FAERS Safety Report 10058529 (Version 1)
Quarter: 2014Q2

REPORT INFORMATION
  Report Type: Spontaneous
  Country: JP (occurrence: None)
  Receive Date: 20140402
  Receipt Date: 20140402
  Transmission Date: 20141212
  Serious: Yes (Death, Hospitalization)
  Sender: FDA-Public Use
  Company Number: FK201401072

PATIENT
  Age: 74 Year
  Sex: Male

DRUGS (4)
  1. CISPLATIN [Suspect]
     Indication: GASTRIC CANCER
  2. GIMERACIL [Suspect]
     Indication: GASTRIC CANCER
  3. OTERACIL [Suspect]
     Indication: GASTRIC CANCER
  4. TEGAFUR [Suspect]
     Indication: GASTRIC CANCER

REACTIONS (5)
  - Arrhythmia [None]
  - Dehydration [None]
  - Decreased appetite [None]
  - Diarrhoea [None]
  - Cardiac failure acute [None]
